FAERS Safety Report 13967733 (Version 1)
Quarter: 2017Q3

REPORT INFORMATION
  Report Type: Spontaneous
  Country: US (occurrence: US)
  Receive Date: 20170914
  Receipt Date: 20170914
  Transmission Date: 20171128
  Serious: Yes (Death, Hospitalization, Other)
  Sender: FDA-Public Use
  Company Number: US-NOVOPROD-562788

PATIENT
  Age: 15 Year
  Sex: Male

DRUGS (1)
  1. NOVOSEVEN RT [Suspect]
     Active Substance: COAGULATION FACTOR VIIA RECOMBINANT HUMAN
     Indication: INTERNAL HAEMORRHAGE
     Dosage: 90 UNITS PER KG
     Route: 042
     Dates: start: 20170811, end: 20170811

REACTIONS (3)
  - Off label use [Recovered/Resolved]
  - Internal haemorrhage [Fatal]
  - Drug ineffective for unapproved indication [Not Recovered/Not Resolved]

NARRATIVE: CASE EVENT DATE: 20170811
